FAERS Safety Report 7190694-2 (Version None)
Quarter: 2010Q4

REPORT INFORMATION
  Report Type: 
  Country: None (occurrence: None)
  Receive Date: 20101223
  Receipt Date: 20101215
  Transmission Date: 20110411
  Serious: Yes (Other)
  Sender: FDA-Public Use
  Company Number: DE-JNJFOC-20101205626

PATIENT
  Sex: Female

DRUGS (6)
  1. CAELYX [Suspect]
     Indication: METASTASES TO LUNG
     Route: 042
  2. CAELYX [Suspect]
     Indication: UTERINE CANCER
     Route: 042
  3. GLYBURIDE [Concomitant]
  4. LISINOPRIL [Concomitant]
  5. METOPROLOL TARTRATE [Concomitant]
  6. ALLOPURINOL [Concomitant]

REACTIONS (3)
  - DYSPNOEA [None]
  - INFUSION RELATED REACTION [None]
  - TREMOR [None]
